FAERS Safety Report 23609819 (Version 6)
Quarter: 2024Q3

REPORT INFORMATION
  Report Type: Spontaneous
  Country: MA (occurrence: MA)
  Receive Date: 20240308
  Receipt Date: 20240829
  Transmission Date: 20241017
  Serious: Yes (Hospitalization, Other)
  Sender: ROCHE
  Company Number: MA-ROCHE-3516889

PATIENT
  Age: 49 Year
  Sex: Male

DRUGS (1)
  1. OCREVUS [Suspect]
     Active Substance: OCRELIZUMAB
     Indication: Primary progressive multiple sclerosis
     Dosage: LAST INFUSION RECEIVED IN NOVEMBER 2023
     Route: 065
     Dates: start: 2020

REACTIONS (12)
  - Encephalitis bacterial [Unknown]
  - Progressive multifocal leukoencephalopathy [Unknown]
  - Multiple sclerosis [Unknown]
  - BK polyomavirus test positive [Unknown]
  - Hemiplegia [Unknown]
  - JC polyomavirus test positive [Unknown]
  - Nervous system disorder [Unknown]
  - Central nervous system lesion [Unknown]
  - Depression [Unknown]
  - Stress [Unknown]
  - Fatigue [Unknown]
  - Haemophilus infection [Unknown]
